FAERS Safety Report 5538291-6 (Version None)
Quarter: 2007Q4

REPORT INFORMATION
  Report Type: 
  Country: None (occurrence: None)
  Receive Date: 20071123
  Receipt Date: 20070802
  Transmission Date: 20080405
  Serious: Yes (Other)
  Sender: FDA-Public Use
  Company Number: US-JNJFOC-20070503983

PATIENT
  Age: 59 Year
  Sex: Female
  Weight: 109.7705 kg

DRUGS (5)
  1. LEVAQUIN [Suspect]
     Indication: DIVERTICULITIS
     Dosage: 500 MG,
     Dates: start: 20061221, end: 20061231
  2. METRONIDAZOLE [Concomitant]
  3. LERTAB              (VICODIN) [Concomitant]
  4. DIOVAN [Concomitant]
  5. CO DIOVAN               (CO-DIOVAN) [Concomitant]

REACTIONS (2)
  - ROTATOR CUFF SYNDROME [None]
  - TENDON RUPTURE [None]
